FAERS Safety Report 9818074 (Version 2)
Quarter: 2014Q1

REPORT INFORMATION
  Report Type: Spontaneous
  Country: BY (occurrence: BY)
  Receive Date: 20140115
  Receipt Date: 20140120
  Transmission Date: 20141002
  Serious: Yes (Life-Threatening)
  Sender: FDA-Public Use
  Company Number: BY-ROCHE-1333526

PATIENT
  Age: 43 Year
  Sex: Male

DRUGS (2)
  1. MIRCERA [Suspect]
     Indication: ANAEMIA
     Route: 065
     Dates: start: 20131101, end: 20131115
  2. MIRCERA [Suspect]
     Indication: RENAL IMPAIRMENT

REACTIONS (1)
  - Subarachnoid haemorrhage [Unknown]
